FAERS Safety Report 8577489 (Version 2)
Quarter: 2013Q1

REPORT INFORMATION
  Report Type: Spontaneous
  Country: JP (occurrence: JP)
  Receive Date: 20120524
  Receipt Date: 20130312
  Transmission Date: 20140127
  Serious: Yes (Other)
  Sender: FDA-Public Use
  Company Number: JP-PFIZER INC-2012119458

PATIENT
  Age: 40 Year
  Sex: Female

DRUGS (1)
  1. NASANYL [Suspect]
     Indication: UTERINE LEIOMYOMA
     Dosage: UNK
     Route: 045

REACTIONS (3)
  - Cerebral vasoconstriction [Recovered/Resolved]
  - Cerebral infarction [Recovered/Resolved]
  - Monoplegia [Recovered/Resolved]
